FAERS Safety Report 7753631-5 (Version None)
Quarter: 2011Q3

REPORT INFORMATION
  Report Type: 
  Country: None (occurrence: None)
  Receive Date: 20110915
  Receipt Date: 20110912
  Transmission Date: 20111222
  Serious: Yes (Hospitalization)
  Sender: FDA-Public Use
  Company Number: FR-GLAXOSMITHKLINE-B0746461A

PATIENT
  Sex: Female

DRUGS (14)
  1. PERINDOPRIL ERBUMINE [Concomitant]
     Indication: HYPERTENSION
     Route: 048
     Dates: start: 20090101
  2. GLUCOPHAGE [Concomitant]
     Indication: DIABETES MELLITUS
     Route: 048
     Dates: start: 20090101
  3. LORAZEPAM [Concomitant]
     Route: 065
     Dates: end: 20090101
  4. PROTELOS [Concomitant]
     Dosage: 1UNIT PER DAY
     Route: 065
  5. AMOXICILLIN TRIHYDRATE [Concomitant]
     Route: 065
     Dates: start: 20090101, end: 20090115
  6. PANTOPRAZOLE SODIUM [Concomitant]
     Route: 048
     Dates: start: 20090101
  7. ASPIRIN [Concomitant]
     Route: 048
     Dates: start: 20090101
  8. ART 50 [Concomitant]
     Dosage: 2UNIT PER DAY
     Route: 065
  9. ZOCOR [Concomitant]
     Dosage: 40MG PER DAY
     Route: 065
  10. PAROXETINE HCL [Suspect]
     Indication: DEPRESSION
     Route: 048
     Dates: end: 20090101
  11. GAVISCON [Concomitant]
     Route: 065
  12. ATHYMIL [Suspect]
     Indication: ANXIETY
     Dosage: 10MG PER DAY
     Route: 048
     Dates: start: 20090101, end: 20090101
  13. PREDNISOLONE [Suspect]
     Indication: DRUG HYPERSENSITIVITY
     Dosage: 20MG PER DAY
     Route: 065
     Dates: start: 20090101
  14. AMARYL [Concomitant]
     Route: 065
     Dates: end: 20090101

REACTIONS (14)
  - AFFECTIVE DISORDER [None]
  - DEPRESSION [None]
  - PERSECUTORY DELUSION [None]
  - AGITATION [None]
  - MEDICATION ERROR [None]
  - MANIA [None]
  - ANXIETY [None]
  - LOGORRHOEA [None]
  - TACHYPHRENIA [None]
  - PSYCHOMOTOR RETARDATION [None]
  - PSYCHOMOTOR HYPERACTIVITY [None]
  - ABNORMAL BEHAVIOUR [None]
  - DEPRESSED MOOD [None]
  - DELIRIUM [None]
